FAERS Safety Report 15535207 (Version 1)
Quarter: 2018Q4

REPORT INFORMATION
  Report Type: Spontaneous
  Country: US (occurrence: US)
  Receive Date: 20181022
  Receipt Date: 20181022
  Transmission Date: 20190205
  Serious: Yes (Hospitalization)
  Sender: FDA-Public Use
  Company Number: US-ABBVIE-18K-163-2526735-00

PATIENT
  Age: 25 Year
  Sex: Male

DRUGS (2)
  1. DACOGEN [Concomitant]
     Active Substance: DECITABINE
     Indication: ACUTE MYELOID LEUKAEMIA
  2. VENCLEXTA [Suspect]
     Active Substance: VENETOCLAX
     Indication: ACUTE MYELOID LEUKAEMIA
     Route: 048

REACTIONS (3)
  - Refractory cancer [Unknown]
  - Acute myeloid leukaemia recurrent [Unknown]
  - Intentional product use issue [Unknown]
